FAERS Safety Report 7089095-7 (Version None)
Quarter: 2010Q4

REPORT INFORMATION
  Report Type: 
  Country: None (occurrence: None)
  Receive Date: 20101108
  Receipt Date: 20101029
  Transmission Date: 20110411
  Serious: Yes (Other)
  Sender: FDA-Public Use
  Company Number: D0069097A

PATIENT
  Sex: Male

DRUGS (4)
  1. AVODART [Suspect]
     Dosage: 1UNIT PER DAY
     Route: 048
     Dates: start: 20080201, end: 20100201
  2. AMLODIPINE [Concomitant]
     Dosage: 5MG TWICE PER DAY
     Route: 065
  3. APROVEL [Concomitant]
     Dosage: 150MG PER DAY
     Route: 065
  4. ALLOPURINOL [Concomitant]
     Dosage: 300MG PER DAY
     Route: 065

REACTIONS (3)
  - HAEMORRHAGIC DIATHESIS [None]
  - HYPERSENSITIVITY [None]
  - POST PROCEDURAL HAEMORRHAGE [None]
